FAERS Safety Report 23252646 (Version 2)
Quarter: 2024Q4

REPORT INFORMATION
  Report Type: Report from Study
  Country: US (occurrence: US)
  Receive Date: 20231201
  Receipt Date: 20241031
  Transmission Date: 20250115
  Serious: Yes (Hospitalization, Other)
  Sender: AEGERION
  Company Number: US-AMRYT PHARMACEUTICALS DAC-AEGR006775

PATIENT
  Age: 28 Year
  Sex: Female

DRUGS (15)
  1. METRELEPTIN [Suspect]
     Active Substance: METRELEPTIN
     Indication: Acquired generalised lipodystrophy
     Dosage: 2.5 MILLIGRAM, QD
     Dates: start: 20180503, end: 20190509
  2. METRELEPTIN [Suspect]
     Active Substance: METRELEPTIN
     Dosage: 5.0 MILLIGRAM, QD
     Dates: start: 20190510
  3. ATORVASTATIN [Concomitant]
     Active Substance: ATORVASTATIN
     Indication: Hypertriglyceridaemia
     Dosage: 10 MILLIGRAM, QD
     Route: 048
     Dates: start: 20170713, end: 20180726
  4. ATORVASTATIN [Concomitant]
     Active Substance: ATORVASTATIN
     Dosage: 10 MILLIGRAM, QD
     Route: 048
     Dates: start: 20190919, end: 20240131
  5. ATORVASTATIN [Concomitant]
     Active Substance: ATORVASTATIN
     Dosage: 40 MILLIGRAM, QD
     Route: 048
     Dates: start: 20240130
  6. FENOFIBRATE [Concomitant]
     Active Substance: FENOFIBRATE
     Indication: Hypertriglyceridaemia
     Dosage: 160 MILLIGRAM, QD
     Route: 048
     Dates: start: 20180809
  7. SYNTHROID [Concomitant]
     Active Substance: LEVOTHYROXINE SODIUM
     Indication: Hypothyroidism
     Dosage: 88 MICROGRAM, QD
     Route: 048
     Dates: start: 20180504
  8. MAGNESIUM OXIDE [Concomitant]
     Active Substance: MAGNESIUM OXIDE
     Indication: Blood magnesium decreased
     Dosage: 400 MILLIGRAM, 12 TABLETS DAILY
     Route: 048
     Dates: start: 20150716
  9. XULANE [Concomitant]
     Active Substance: ETHINYL ESTRADIOL\NORELGESTROMIN
     Indication: Hypopituitarism
     Dosage: 35 MICROGRAM, QW
     Route: 061
     Dates: start: 20180504
  10. XULANE [Concomitant]
     Active Substance: ETHINYL ESTRADIOL\NORELGESTROMIN
     Indication: Contraception
     Dosage: 150- 35MCG/24HR, 1 PATCH, Q WEEKLY, 3W A MONTH
     Route: 061
     Dates: start: 20191024
  11. ERGOCALCIFEROL [Concomitant]
     Active Substance: ERGOCALCIFEROL
     Indication: Vitamin D decreased
     Dosage: 5000 INTERNATIONAL UNIT, WEEKLY
     Route: 048
     Dates: start: 2018
  12. CARBAMAZEPINE [Concomitant]
     Active Substance: CARBAMAZEPINE
     Indication: Medulloblastoma
     Dosage: 200 MILLIGRAM, BID
     Route: 048
  13. CLIMARA [Concomitant]
     Active Substance: ESTRADIOL
     Indication: Hypogonadism female
     Dosage: 0.1MG/24 HR, 1 PATCH, QW
     Route: 061
     Dates: start: 20220914, end: 20230111
  14. ESTRACE [Concomitant]
     Active Substance: ESTRADIOL
     Indication: Hypogonadism
     Dosage: 1 GRAM, QD
     Route: 061
     Dates: start: 20220427, end: 20231006
  15. LEVETIRACETAM [Concomitant]
     Active Substance: LEVETIRACETAM
     Indication: Prophylaxis
     Dosage: 500 MILLIGRAM, BID
     Route: 048
     Dates: start: 20230129, end: 20230619

REACTIONS (1)
  - Meningioma [Recovered/Resolved with Sequelae]

NARRATIVE: CASE EVENT DATE: 20230104
